FAERS Safety Report 8521180-2 (Version None)
Quarter: 2012Q3

REPORT INFORMATION
  Report Type: 
  Country: None (occurrence: None)
  Receive Date: 20120719
  Receipt Date: 20120717
  Transmission Date: 20120928
  Serious: Yes (Death, Hospitalization)
  Sender: FDA-Public Use
  Company Number: BR-ELI_LILLY_AND_COMPANY-BR201207005376

PATIENT
  Sex: Female
  Weight: 40 kg

DRUGS (1)
  1. FORTEO [Suspect]
     Indication: OSTEOPOROSIS
     Dosage: UNK, UNKNOWN
     Route: 065
     Dates: start: 20120101

REACTIONS (4)
  - URINARY TRACT INFECTION [None]
  - PNEUMONIA [None]
  - CARDIAC FAILURE [None]
  - PLEURAL EFFUSION [None]
